FAERS Safety Report 13445875 (Version 1)
Quarter: 2017Q2

REPORT INFORMATION
  Report Type: Spontaneous
  Country: US (occurrence: US)
  Receive Date: 20170417
  Receipt Date: 20170417
  Transmission Date: 20170830
  Serious: No
  Sender: FDA-Public Use
  Company Number: US-BION-005905

PATIENT
  Age: 66 Year
  Sex: Female
  Weight: 86 kg

DRUGS (4)
  1. BAYER LOW DOSE [Suspect]
     Active Substance: ASPIRIN
     Indication: PROPHYLAXIS
     Dosage: ENTERIC TABLETS 32CT
     Route: 048
     Dates: start: 2007
  2. SIMVASTATIN. [Concomitant]
     Active Substance: SIMVASTATIN
  3. ALEVE [Suspect]
     Active Substance: NAPROXEN SODIUM
     Indication: PAIN
     Dosage: STARTED WITH ALEVE 2 YEARS AGO FOR ABOUT 3-4 DAYS, AFTER A SURGERY
     Route: 048
     Dates: start: 2015, end: 2015
  4. UBIDECARENONE [Concomitant]
     Active Substance: UBIDECARENONE

REACTIONS (5)
  - Feeling abnormal [None]
  - Wrong technique in product usage process [None]
  - Dizziness [Recovered/Resolved]
  - Feeling drunk [Recovered/Resolved]
  - Drug administration error [Not Recovered/Not Resolved]
